FAERS Safety Report 13159417 (Version 1)
Quarter: 2017Q1

REPORT INFORMATION
  Report Type: Spontaneous
  Country: AU (occurrence: AU)
  Receive Date: 20170127
  Receipt Date: 20170127
  Transmission Date: 20170428
  Serious: Yes (Other)
  Sender: FDA-Public Use
  Company Number: AU-SA-2017SA010290

PATIENT
  Sex: Male

DRUGS (3)
  1. NATURES OWN ODOURLESS FISH OIL [Suspect]
     Active Substance: DOCONEXENT\ ICOSAPENT\ FISH OIL\ OMEGA-3 FATTY ACIDS
     Route: 048
  2. PLAVIX [Suspect]
     Active Substance: CLOPIDOGREL BISULFATE
     Route: 065
  3. PANADOL [Concomitant]
     Active Substance: ACETAMINOPHEN

REACTIONS (2)
  - Haemorrhage [Unknown]
  - Contusion [Unknown]
